FAERS Safety Report 9066041 (Version 2)
Quarter: 2013Q1

REPORT INFORMATION
  Report Type: Report from Study
  Country: GB (occurrence: GB)
  Receive Date: 20130202
  Receipt Date: 20130225
  Transmission Date: 20140127
  Serious: Yes (Hospitalization)
  Sender: FDA-Public Use
  Company Number: GB-AMGEN-GBRCT2013007002

PATIENT
  Age: 43 Year
  Sex: Female
  Weight: 83 kg

DRUGS (1)
  1. ETANERCEPT [Suspect]
     Indication: RHEUMATOID ARTHRITIS
     Dosage: 25 MG, 2 TIMES/WK
     Dates: start: 20120615

REACTIONS (1)
  - Abdominal distension [Unknown]
